FAERS Safety Report 8456880-6 (Version None)
Quarter: 2012Q2

REPORT INFORMATION
  Report Type: 
  Country: None (occurrence: None)
  Receive Date: 20120621
  Receipt Date: 20120614
  Transmission Date: 20120825
  Serious: No
  Sender: FDA-Public Use
  Company Number: US-B.I. PHARMACEUTICALS,INC./RIDGEFIELD-2012-BP-10934BP

PATIENT
  Sex: Female
  Weight: 75.75 kg

DRUGS (7)
  1. LOVASTATIN [Concomitant]
     Indication: BLOOD CHOLESTEROL INCREASED
     Dosage: 20 MG
  2. ASPIRIN [Concomitant]
     Indication: CEREBROVASCULAR ACCIDENT PROPHYLAXIS
  3. METFORMIN HCL [Concomitant]
     Indication: DIABETES MELLITUS
     Dosage: 2500 MG
  4. ASPIRIN [Concomitant]
     Indication: CORONARY ARTERY DISEASE
     Dosage: 325 MG
  5. ZANTAC 75 [Suspect]
     Indication: GASTROOESOPHAGEAL REFLUX DISEASE
  6. ZANTAC 75 [Suspect]
     Indication: DYSPHONIA
     Dosage: 75 MG
     Route: 048
     Dates: start: 20120514, end: 20120515
  7. ACYCLOVIR [Concomitant]
     Indication: HERPES SIMPLEX
     Dosage: 400 MG

REACTIONS (4)
  - POLLAKIURIA [None]
  - DIZZINESS [None]
  - PAIN IN EXTREMITY [None]
  - PERIPHERAL COLDNESS [None]
